FAERS Safety Report 19282139 (Version 2)
Quarter: 2021Q2

REPORT INFORMATION
  Report Type: Spontaneous
  Country: PL (occurrence: GB)
  Receive Date: 20210520
  Receipt Date: 20210604
  Transmission Date: 20210717
  Serious: Yes (Hospitalization, Other)
  Sender: FDA-Public Use
  Company Number: PL-BIOGEN-2021BI00995609

PATIENT
  Age: 50 Year
  Sex: Female
  Weight: 95 kg

DRUGS (1)
  1. TYSABRI [Suspect]
     Active Substance: NATALIZUMAB
     Indication: MULTIPLE SCLEROSIS
     Route: 065
     Dates: start: 201710, end: 20210203

REACTIONS (3)
  - Multiple sclerosis relapse [Unknown]
  - Immune reconstitution inflammatory syndrome [Unknown]
  - Progressive multifocal leukoencephalopathy [Unknown]

NARRATIVE: CASE EVENT DATE: 202101
